FAERS Safety Report 7034014-2 (Version None)
Quarter: 2010Q4

REPORT INFORMATION
  Report Type: 
  Country: None (occurrence: None)
  Receive Date: 20101007
  Receipt Date: 20101001
  Transmission Date: 20110411
  Serious: Yes (Death, Life-Threatening, Hospitalization)
  Sender: FDA-Public Use
  Company Number: PHHY2010JP51725

PATIENT
  Sex: Male
  Weight: 66 kg

DRUGS (13)
  1. AFINITOR [Suspect]
     Indication: METASTATIC RENAL CELL CARCINOMA
     Dosage: 10 MG DAILY
     Route: 048
     Dates: start: 20100602, end: 20100706
  2. AFINITOR [Suspect]
     Dosage: 10 MG DAILY
     Route: 048
     Dates: start: 20100728, end: 20100813
  3. INTERFERON ALFA [Concomitant]
     Indication: METASTATIC RENAL CELL CARCINOMA
     Dosage: 3000000 DF
     Route: 042
     Dates: start: 20090420, end: 20090624
  4. TECELEUKIN [Concomitant]
     Indication: METASTATIC RENAL CELL CARCINOMA
     Dosage: UNK
     Route: 042
     Dates: start: 20090420, end: 20090624
  5. SUNITINIB MALATE [Concomitant]
     Indication: METASTATIC RENAL CELL CARCINOMA
     Dosage: 50 MG
     Route: 048
     Dates: start: 20090701
  6. SUNITINIB MALATE [Concomitant]
     Dosage: 37.5 MG
     Route: 048
  7. SUNITINIB MALATE [Concomitant]
     Dosage: 25 MG
     Route: 048
     Dates: end: 20100316
  8. SORAFENIB TOSILATE [Concomitant]
     Indication: METASTATIC RENAL CELL CARCINOMA
     Dosage: 800 MG
     Route: 048
     Dates: start: 20100401
  9. SORAFENIB TOSILATE [Concomitant]
     Dosage: 400 MG
     Route: 048
     Dates: end: 20100523
  10. THYRADIN [Concomitant]
     Dosage: 100 ?G
     Route: 048
     Dates: start: 20100526
  11. THYRADIN [Concomitant]
     Dosage: 100 ?G
     Route: 048
  12. THYRADIN [Concomitant]
     Dosage: 150 ?G
     Route: 048
     Dates: end: 20100909
  13. NOVAMIN [Concomitant]
     Dosage: UNK
     Route: 048
     Dates: start: 20100825

REACTIONS (11)
  - ANAEMIA [None]
  - CHEILITIS [None]
  - COUGH [None]
  - DYSPNOEA [None]
  - MALIGNANT NEOPLASM PROGRESSION [None]
  - OEDEMA PERIPHERAL [None]
  - PLEURAL EFFUSION [None]
  - PLEURISY [None]
  - RESPIRATORY FAILURE [None]
  - STAPHYLOCOCCUS TEST POSITIVE [None]
  - STOMATITIS [None]
